FAERS Safety Report 17975960 (Version 1)
Quarter: 2020Q3

REPORT INFORMATION
  Report Type: Spontaneous
  Country: BR (occurrence: BR)
  Receive Date: 20200702
  Receipt Date: 20200702
  Transmission Date: 20201103
  Serious: Yes (Death)
  Sender: FDA-Public Use
  Company Number: BR-BAYER-2020-134056

PATIENT
  Sex: Male

DRUGS (1)
  1. STIVARGA [Suspect]
     Active Substance: REGORAFENIB

REACTIONS (1)
  - Death [Fatal]

NARRATIVE: CASE EVENT DATE: 20200626
